FAERS Safety Report 16701949 (Version 3)
Quarter: 2020Q2

REPORT INFORMATION
  Report Type: Other
  Country: US (occurrence: US)
  Receive Date: 20190814
  Receipt Date: 20200428
  Transmission Date: 20200713
  Serious: Yes (Death, Other)
  Sender: FDA-Public Use
  Company Number: US-AMAG PHARMACEUTICALS, INC.-AMAG201904090

PATIENT
  Age: 0 Day
  Sex: Female
  Weight: .59 kg

DRUGS (1)
  1. MAKENA [Suspect]
     Active Substance: HYDROXYPROGESTERONE CAPROATE
     Indication: FOETAL EXPOSURE DURING PREGNANCY
     Route: 064
     Dates: start: 20190409, end: 20190507

REACTIONS (2)
  - Bradycardia foetal [Fatal]
  - Stillbirth [Fatal]

NARRATIVE: CASE EVENT DATE: 20190522
